FAERS Safety Report 5777981-7 (Version None)
Quarter: 2008Q2

REPORT INFORMATION
  Report Type: 
  Country: None (occurrence: None)
  Receive Date: 20080619
  Receipt Date: 20080612
  Transmission Date: 20081010
  Serious: Yes (Other)
  Sender: FDA-Public Use
  Company Number: SE-TEVA-172848ISR

PATIENT
  Sex: Female

DRUGS (1)
  1. METHOTREXATE [Suspect]

REACTIONS (2)
  - DYSPNOEA [None]
  - PULMONARY EMBOLISM [None]
